FAERS Safety Report 16216673 (Version 5)
Quarter: 2019Q4

REPORT INFORMATION
  Report Type: Report from Study
  Country: US (occurrence: US)
  Receive Date: 20190419
  Receipt Date: 20191219
  Transmission Date: 20200122
  Serious: Yes (Death, Life-Threatening, Other)
  Sender: FDA-Public Use
  Company Number: PHEH2019US016084

PATIENT
  Age: 1 Year
  Sex: Female
  Weight: 12.75 kg

DRUGS (7)
  1. KYMRIAH [Suspect]
     Active Substance: TISAGENLECLEUCEL
     Indication: B-CELL TYPE ACUTE LEUKAEMIA
     Dosage: 0.2E6 CAR-POSITIVE VIABLE T-CELLS/KG BODY WEIGHT, 200000 MG/KG, UNK (ONE SINGLE DOSE)
     Route: 065
     Dates: start: 20190409
  2. CYCLOPHOSPHAMIDE. [Concomitant]
     Active Substance: CYCLOPHOSPHAMIDE
     Indication: PRODUCT USED FOR UNKNOWN INDICATION
     Route: 065
  3. LEVOFLOXACIN. [Concomitant]
     Active Substance: LEVOFLOXACIN
     Indication: PRODUCT USED FOR UNKNOWN INDICATION
     Dosage: UNK
     Route: 065
  4. MICAFUNGIN. [Concomitant]
     Active Substance: MICAFUNGIN SODIUM
     Indication: PRODUCT USED FOR UNKNOWN INDICATION
     Dosage: UNK
     Route: 065
  5. ALLOPURINOL. [Concomitant]
     Active Substance: ALLOPURINOL
     Indication: PRODUCT USED FOR UNKNOWN INDICATION
     Dosage: UNK
     Route: 065
  6. PENTAMIDINE [Concomitant]
     Active Substance: PENTAMIDINE
     Indication: PRODUCT USED FOR UNKNOWN INDICATION
     Dosage: UNK
     Route: 065
  7. FLUDARABINE [Concomitant]
     Active Substance: FLUDARABINE PHOSPHATE
     Indication: PRODUCT USED FOR UNKNOWN INDICATION
     Route: 065

REACTIONS (15)
  - Platelet count decreased [Unknown]
  - Sinusitis [Unknown]
  - Hypogammaglobulinaemia [Unknown]
  - Upper respiratory fungal infection [Unknown]
  - B-cell type acute leukaemia [Fatal]
  - Drug ineffective [Unknown]
  - Malignant neoplasm progression [Fatal]
  - White blood cell count increased [Unknown]
  - Respirovirus test positive [Unknown]
  - Treatment failure [Unknown]
  - Respiratory failure [Fatal]
  - Fungal infection [Unknown]
  - Rubulavirus test positive [Unknown]
  - Haemoglobin decreased [Unknown]
  - Haematocrit decreased [Unknown]

NARRATIVE: CASE EVENT DATE: 20190409
